FAERS Safety Report 4882990-6 (Version None)
Quarter: 2006Q1

REPORT INFORMATION
  Report Type: 
  Country: None (occurrence: None)
  Receive Date: 20060112
  Receipt Date: 20051027
  Transmission Date: 20060701
  Serious: Yes (Death)
  Sender: FDA-Public Use
  Company Number: 2006-CZ-00184

PATIENT
  Sex: Male

DRUGS (7)
  1. SALBUTAMOL TABLETS BP 2 MG (SALBUTAMOL) [Suspect]
     Dosage: RESPIRATORY (INHALATION)
     Route: 055
  2. BENDROFLUAZIDE 2.5MG TABLETS (BENDROFLUMETHIAZIDE) [Suspect]
  3. BECLOMETHASONE DIPROPIONATE [Suspect]
     Dosage: RESPIRATORY (INHALATION)
     Route: 055
  4. DOTHIEPIN CAPSULES BP 25MG (DOSULEPIN) [Suspect]
  5. TIOTROPIUM BROMIDE (18 MICROGRAM) [Suspect]
     Dosage: RESPIRATORY (INHALATION)
     Route: 055
  6. LEKOVIT CA [Suspect]
  7. SALMETEROL [Suspect]
     Dosage: RESPIRATORY (INHALATION)
     Route: 055

REACTIONS (3)
  - CHRONIC OBSTRUCTIVE PULMONARY DISEASE [None]
  - LOWER RESPIRATORY TRACT INFECTION [None]
  - PULMONARY TUBERCULOSIS [None]
